FAERS Safety Report 10151563 (Version 1)
Quarter: 2014Q2

REPORT INFORMATION
  Report Type: Spontaneous
  Country: US (occurrence: US)
  Receive Date: 20140505
  Receipt Date: 20140505
  Transmission Date: 20141212
  Serious: Yes (Other)
  Sender: FDA-Public Use
  Company Number: US-ROCHE-1391801

PATIENT
  Sex: Female

DRUGS (2)
  1. BONIVA [Suspect]
     Indication: OSTEOPOROSIS
     Route: 042
  2. METHADONE [Concomitant]

REACTIONS (5)
  - Bradycardia [Unknown]
  - Cardiomyopathy [Unknown]
  - Influenza like illness [Unknown]
  - Asthenia [Unknown]
  - Muscular weakness [Unknown]
